FAERS Safety Report 10615944 (Version 2)
Quarter: 2014Q4

REPORT INFORMATION
  Report Type: Spontaneous
  Country: DE (occurrence: DE)
  Receive Date: 20141201
  Receipt Date: 20141201
  Transmission Date: 20150529
  Serious: Yes (Death, Other)
  Sender: FDA-Public Use
  Company Number: DE-CELGENE-062-50794-13113093

PATIENT

DRUGS (1)
  1. VIDAZA [Suspect]
     Active Substance: AZACITIDINE
     Indication: ACUTE MYELOID LEUKAEMIA
     Route: 050

REACTIONS (9)
  - Death [Fatal]
  - General physical health deterioration [Unknown]
  - No therapeutic response [Unknown]
  - Febrile neutropenia [Unknown]
  - Sepsis [Unknown]
  - Pneumonia [Unknown]
  - Rash [Unknown]
  - Haemorrhage [Unknown]
  - Mucosal inflammation [Unknown]
